FAERS Safety Report 7132069-8 (Version None)
Quarter: 2010Q4

REPORT INFORMATION
  Report Type: 
  Country: None (occurrence: None)
  Receive Date: 20101202
  Receipt Date: 20101123
  Transmission Date: 20110411
  Serious: Yes (Other)
  Sender: FDA-Public Use
  Company Number: CA-ASTRAZENECA-2010SE50725

PATIENT
  Age: 73 Year
  Sex: Male

DRUGS (4)
  1. SYMBICORT [Suspect]
     Route: 055
     Dates: start: 20091101
  2. SYMBICORT [Suspect]
     Dosage: 200 MCG 1 PUFFS, TWO TIMES A DAY
     Route: 055
     Dates: start: 20101019
  3. SYMBICORT [Suspect]
     Route: 055
  4. SPIRIVA [Concomitant]

REACTIONS (4)
  - COUGH [None]
  - HAEMOPTYSIS [None]
  - PYREXIA [None]
  - TREMOR [None]
